FAERS Safety Report 5605938-5 (Version None)
Quarter: 2008Q1

REPORT INFORMATION
  Report Type: 
  Country: None (occurrence: None)
  Receive Date: 20080125
  Receipt Date: 20080111
  Transmission Date: 20080703
  Serious: Yes (Hospitalization)
  Sender: FDA-Public Use
  Company Number: 230415J08USA

PATIENT
  Age: 35 Year
  Sex: Female
  Weight: 82.1011 kg

DRUGS (5)
  1. REBIF [Suspect]
     Indication: MULTIPLE SCLEROSIS
     Dosage: SEE IMAGE
     Route: 058
     Dates: start: 20060919
  2. REBIF [Suspect]
     Indication: MULTIPLE SCLEROSIS
     Dosage: SEE IMAGE
     Route: 058
     Dates: start: 20080107
  3. LOTREL [Concomitant]
  4. IRON (IRON) [Concomitant]
  5. UNSPECIFIED MEDICATION (ALL OTHER THERAPEUTIC PRODUCTS) [Concomitant]

REACTIONS (13)
  - ACCIDENTAL OVERDOSE [None]
  - BRONCHITIS [None]
  - CHILLS [None]
  - CONTUSION [None]
  - COUGH [None]
  - DEPRESSION [None]
  - DRUG DOSE OMISSION [None]
  - DYSPNOEA [None]
  - FALL [None]
  - JOINT SPRAIN [None]
  - LIVER FUNCTION TEST ABNORMAL [None]
  - UPPER RESPIRATORY TRACT INFECTION [None]
  - WHEEZING [None]
